FAERS Safety Report 18273745 (Version 1)
Quarter: 2020Q3

REPORT INFORMATION
  Report Type: Spontaneous
  Country: DE (occurrence: DE)
  Receive Date: 20200916
  Receipt Date: 20200916
  Transmission Date: 20201103
  Serious: Yes (Hospitalization)
  Sender: FDA-Public Use
  Company Number: DE-009507513-2009DEU004467

PATIENT
  Age: 75 Year
  Sex: Male

DRUGS (3)
  1. PEMBROLIZUMAB. [Suspect]
     Active Substance: PEMBROLIZUMAB
     Dosage: 200 MG
     Dates: end: 20200723
  2. PREDNISOLON [Suspect]
     Active Substance: PREDNISOLONE
     Dosage: 50 MG, NK
  3. LEVOFLOXACIN. [Suspect]
     Active Substance: LEVOFLOXACIN
     Indication: URINARY TRACT INFECTION
     Dosage: UNKNOWN MG, START 05?AUG?2020
     Dates: start: 20200805

REACTIONS (4)
  - Tendon pain [Unknown]
  - Dysuria [Unknown]
  - Tendon rupture [Unknown]
  - Tendon pain [Unknown]

NARRATIVE: CASE EVENT DATE: 202008
